FAERS Safety Report 11251422 (Version 1)
Quarter: 2015Q3

REPORT INFORMATION
  Report Type: Spontaneous
  Country: US (occurrence: US)
  Receive Date: 20150708
  Receipt Date: 20150708
  Transmission Date: 20151125
  Serious: No
  Sender: FDA-Public Use
  Company Number: US-ELI_LILLY_AND_COMPANY-US201202001994

PATIENT
  Sex: Female

DRUGS (2)
  1. ALIMTA [Suspect]
     Active Substance: PEMETREXED DISODIUM
     Indication: LUNG NEOPLASM MALIGNANT
     Dosage: UNK, EVERY 21 DAYS
     Dates: start: 201109
  2. CORTICOSTEROIDS [Concomitant]
     Active Substance: CORTICOSTEROID NOS
     Dosage: UNK

REACTIONS (7)
  - Constipation [Unknown]
  - Malaise [Unknown]
  - Sleep disorder [Unknown]
  - Decreased interest [Unknown]
  - Eating disorder [Unknown]
  - Abdominal pain upper [Unknown]
  - Headache [Unknown]
